FAERS Safety Report 16355731 (Version 2)
Quarter: 2019Q3

REPORT INFORMATION
  Report Type: Spontaneous
  Country: US (occurrence: US)
  Receive Date: 20190525
  Receipt Date: 20190701
  Transmission Date: 20191004
  Serious: No
  Sender: FDA-Public Use
  Company Number: US-JNJFOC-20190514789

PATIENT
  Sex: Male

DRUGS (1)
  1. CONCERTA [Suspect]
     Active Substance: METHYLPHENIDATE HYDROCHLORIDE
     Indication: PRODUCT USED FOR UNKNOWN INDICATION
     Route: 048

REACTIONS (7)
  - Testicular pain [Unknown]
  - Hypoaesthesia oral [Unknown]
  - Hyperhidrosis [Unknown]
  - Tongue dry [Unknown]
  - Headache [Unknown]
  - Abdominal pain upper [Unknown]
  - Therapeutic response decreased [Unknown]
